FAERS Safety Report 5052664-X (Version None)
Quarter: 2006Q3

REPORT INFORMATION
  Report Type: 
  Country: None (occurrence: None)
  Receive Date: 20060717
  Receipt Date: 20060706
  Transmission Date: 20061208
  Serious: Yes (Hospitalization, Other)
  Sender: FDA-Public Use
  Company Number: DK-KINGPHARMUSA00001-K200600884

PATIENT
  Sex: Female

DRUGS (1)
  1. EPIPEN [Suspect]
     Indication: PROPHYLAXIS
     Dosage: .3 MG, SINGLE
     Route: 030
     Dates: start: 20060511, end: 20060511

REACTIONS (2)
  - ACCIDENTAL EXPOSURE [None]
  - VASOCONSTRICTION [None]
